FAERS Safety Report 9926932 (Version 2)
Quarter: 2014Q1

REPORT INFORMATION
  Report Type: Spontaneous
  Country: US (occurrence: US)
  Receive Date: 20140226
  Receipt Date: 20140319
  Transmission Date: 20141002
  Serious: Yes (Other)
  Sender: FDA-Public Use
  Company Number: PHEH2014US003390

PATIENT
  Age: 47 Year
  Sex: Female
  Weight: 114.29 kg

DRUGS (15)
  1. GILENYA [Suspect]
     Indication: RELAPSING-REMITTING MULTIPLE SCLEROSIS
     Dosage: 0.5 MG, QD
     Route: 048
     Dates: start: 201011, end: 20110131
  2. GILENYA [Suspect]
     Dosage: 0.5 UNK, UNK
     Route: 048
     Dates: start: 20110309, end: 20110915
  3. GILENYA [Suspect]
     Dosage: 0.5 UNK, UNK
     Route: 048
     Dates: start: 20110926, end: 20111013
  4. GILENYA [Suspect]
     Dosage: 0.5 UNK, UNK
     Route: 048
     Dates: start: 20120112
  5. GILENYA [Suspect]
     Dosage: 0.5 MG, QOD
     Dates: start: 20120516, end: 20120531
  6. GILENYA [Suspect]
     Dosage: 0.5 MG, UNK
     Route: 048
     Dates: start: 20120815, end: 20130430
  7. VITAMIN C [Concomitant]
  8. VITAMIN D [Concomitant]
  9. IRON [Concomitant]
  10. VITAMIN D3 [Concomitant]
     Dosage: 1 DF, DAILY
     Route: 048
  11. EPINEPHRINE [Concomitant]
     Indication: ANAPHYLACTIC REACTION
     Dosage: 0.3 ML, PRN
     Route: 065
  12. HYDROCORTISONE [Concomitant]
  13. GLYCOLAX [Concomitant]
     Dosage: 17 G, DAILY
     Route: 048
  14. VITAMIN B12 [Concomitant]
     Dosage: 1000 UG, UNK
     Route: 048
  15. FOLVITE [Concomitant]
     Dosage: 1 MG, DAILY
     Route: 048

REACTIONS (6)
  - Papillary thyroid cancer [Not Recovered/Not Resolved]
  - Multiple sclerosis relapse [Unknown]
  - Monocyte count decreased [Unknown]
  - Lymphocyte count decreased [Unknown]
  - Neutrophil count decreased [Unknown]
  - Prescribed underdose [Unknown]
